FAERS Safety Report 9032680 (Version 1)
Quarter: 2013Q1

REPORT INFORMATION
  Report Type: Spontaneous
  Country: US (occurrence: US)
  Receive Date: 20130127
  Receipt Date: 20130127
  Transmission Date: 20140127
  Serious: No
  Sender: FDA-Public Use
  Company Number: US-009507513-1301USA011142

PATIENT
  Age: 21 Year
  Sex: Female

DRUGS (2)
  1. NUVARING [Suspect]
     Indication: CONTRACEPTION
     Dosage: UNK EVERY 3 WEEKS IN, 1 WEEK OUT
     Route: 067
     Dates: start: 201212
  2. ANESTHETIC (UNSPECIFIED) [Concomitant]

REACTIONS (1)
  - Abdominal discomfort [Unknown]
